FAERS Safety Report 13664862 (Version 1)
Quarter: 2017Q2

REPORT INFORMATION
  Report Type: Spontaneous
  Country: TW (occurrence: TW)
  Receive Date: 20170619
  Receipt Date: 20170619
  Transmission Date: 20170830
  Serious: Yes (Hospitalization, Other)
  Sender: FDA-Public Use
  Company Number: TW-JUBILANT CADISTA PHARMACEUTICALS-2017JUB00195

PATIENT
  Age: 32 Year
  Sex: Male

DRUGS (7)
  1. FLUPENTIXOL [Concomitant]
     Active Substance: FLUPENTIXOL
     Dosage: UNK
     Route: 065
     Dates: start: 2016
  2. OLANZAPINE. [Suspect]
     Active Substance: OLANZAPINE
     Dosage: 10 MG, 1X/DAY
     Route: 048
     Dates: start: 201604
  3. FLUPENTIXOL [Concomitant]
     Active Substance: FLUPENTIXOL
     Dosage: 12 MG, 1X/DAY
     Route: 048
  4. CLONAZEPAM. [Concomitant]
     Active Substance: CLONAZEPAM
     Dosage: 2 MG, 1X/DAY AT BEDTIME
     Route: 065
     Dates: start: 2016
  5. OLANZAPINE. [Suspect]
     Active Substance: OLANZAPINE
     Indication: PSYCHOTIC DISORDER
     Dosage: 15 MG, 1X/DAY
     Route: 065
     Dates: start: 201508
  6. ESTAZOLAM. [Concomitant]
     Active Substance: ESTAZOLAM
     Dosage: 2 MG, AT BEDTIME
     Route: 048
  7. BIPERIDEN [Concomitant]
     Active Substance: BIPERIDEN
     Dosage: 2 MG, 2X/DAY
     Route: 065
     Dates: start: 2016

REACTIONS (1)
  - Hyperammonaemia [Recovered/Resolved]

NARRATIVE: CASE EVENT DATE: 201508
